FAERS Safety Report 26144555 (Version 1)
Quarter: 2025Q4

REPORT INFORMATION
  Report Type: Spontaneous
  Country: EU (occurrence: EU)
  Receive Date: 20251211
  Receipt Date: 20251211
  Transmission Date: 20260117
  Serious: Yes (Hospitalization, Other)
  Sender: SANOFI AVENTIS
  Company Number: EU-DialogSolutions-SAAVPROD-PI852100-C1

PATIENT
  Age: 52 Year
  Sex: Male

DRUGS (2)
  1. DUPILUMAB [Suspect]
     Active Substance: DUPILUMAB
     Indication: Dermatitis atopic
     Dosage: UNK
  2. METHOTREXATE [Concomitant]
     Active Substance: METHOTREXATE
     Indication: Cutaneous T-cell lymphoma stage I
     Dosage: UNK

REACTIONS (9)
  - Cutaneous T-cell lymphoma stage I [Unknown]
  - Parakeratosis [Unknown]
  - Rash [Unknown]
  - Skin necrosis [Unknown]
  - Cutaneous vasculitis [Unknown]
  - Poikiloderma [Unknown]
  - Skin plaque [Unknown]
  - Eczema [Unknown]
  - Macule [Unknown]
